FAERS Safety Report 19173424 (Version 1)
Quarter: 2021Q2

REPORT INFORMATION
  Report Type: Spontaneous
  Country: US (occurrence: US)
  Receive Date: 20210423
  Receipt Date: 20210423
  Transmission Date: 20210717
  Serious: No
  Sender: FDA-Public Use
  Company Number: US-TEVA-2021-US-1899587

PATIENT
  Sex: Female

DRUGS (2)
  1. NEFAZODONE [Suspect]
     Active Substance: NEFAZODONE
     Route: 065
  2. TRAZODONE [Suspect]
     Active Substance: TRAZODONE HYDROCHLORIDE
     Route: 065

REACTIONS (3)
  - Withdrawal syndrome [Unknown]
  - Hypertension [Unknown]
  - Feeling abnormal [Unknown]
